FAERS Safety Report 12671703 (Version 2)
Quarter: 2016Q4

REPORT INFORMATION
  Report Type: Spontaneous
  Country: US (occurrence: US)
  Receive Date: 20160822
  Receipt Date: 20161017
  Transmission Date: 20170207
  Serious: No
  Sender: FDA-Public Use
  Company Number: US-JNJFOC-20160622591

PATIENT
  Age: 68 Year
  Sex: Female
  Weight: 57.15 kg

DRUGS (19)
  1. DAPSONE. [Concomitant]
     Active Substance: DAPSONE
     Dosage: EVERY MONDAY, WEDNESDAY, AND FRIDAY
  2. METHYLPREDNISOLONE. [Concomitant]
     Active Substance: METHYLPREDNISOLONE
  3. COLACE [Concomitant]
     Active Substance: DOCUSATE SODIUM
  4. PRILOSEC [Concomitant]
     Active Substance: OMEPRAZOLE MAGNESIUM
  5. VELCADE [Concomitant]
     Active Substance: BORTEZOMIB
     Indication: PLASMA CELL MYELOMA
     Dosage: RECEIVED THE DAY BEFORE RECEIVING DARALEX
     Dates: start: 20160426
  6. VITAMIN D3 [Concomitant]
     Active Substance: CHOLECALCIFEROL
     Dosage: 5000 UNITS
  7. REVLIMID [Concomitant]
     Active Substance: LENALIDOMIDE
     Indication: PLASMA CELL MYELOMA
     Dates: start: 20160426
  8. AREDIA [Concomitant]
     Active Substance: PAMIDRONATE DISODIUM
  9. FLUCONAZOLE. [Concomitant]
     Active Substance: FLUCONAZOLE
     Indication: ANTIFUNGAL PROPHYLAXIS
     Route: 065
  10. LOVENOX [Concomitant]
     Active Substance: ENOXAPARIN SODIUM
  11. DIFLUCAN [Concomitant]
     Active Substance: FLUCONAZOLE
     Dosage: EVERY MONDAY, WEDNESDAY, AND FRIDAY ON WEEKS OF DEXAMETHASONE
  12. ONDANSETRON [Concomitant]
     Active Substance: ONDANSETRON
     Dosage: EVERY 8 HOURS AS NEEDED
  13. ACYCLOVIR. [Concomitant]
     Active Substance: ACYCLOVIR
     Indication: ANTIVIRAL PROPHYLAXIS
     Route: 065
  14. DEXAMETHASONE. [Concomitant]
     Active Substance: DEXAMETHASONE
     Route: 065
     Dates: start: 20160426
  15. DARZALEX [Suspect]
     Active Substance: DARATUMUMAB
     Indication: PLASMA CELL MYELOMA
     Route: 042
     Dates: start: 20160426
  16. TUMS [Concomitant]
     Active Substance: CALCIUM CARBONATE
  17. ARANESP [Concomitant]
     Active Substance: DARBEPOETIN ALFA
  18. MIRALAX [Concomitant]
     Active Substance: POLYETHYLENE GLYCOL 3350
  19. DILAUDID [Concomitant]
     Active Substance: HYDROMORPHONE HYDROCHLORIDE

REACTIONS (1)
  - Drug ineffective [Unknown]

NARRATIVE: CASE EVENT DATE: 20160628
